FAERS Safety Report 12598039 (Version 2)
Quarter: 2016Q3

REPORT INFORMATION
  Report Type: Report from Study
  Country: CA (occurrence: CA)
  Receive Date: 20160726
  Receipt Date: 20160930
  Transmission Date: 20161109
  Serious: Yes (Other)
  Sender: FDA-Public Use
  Company Number: CA-HLSUS-2016-CA-000020

PATIENT
  Age: 36 Year
  Sex: Male

DRUGS (1)
  1. CLOZARIL [Suspect]
     Active Substance: CLOZAPINE
     Route: 048
     Dates: start: 20140213, end: 20160419

REACTIONS (4)
  - Electrocardiogram ST segment abnormal [Unknown]
  - Palpitations [Unknown]
  - Anxiety [Unknown]
  - Chest pain [Unknown]

NARRATIVE: CASE EVENT DATE: 20160311
